FAERS Safety Report 5334990-X (Version None)
Quarter: 2007Q2

REPORT INFORMATION
  Report Type: 
  Country: None (occurrence: None)
  Receive Date: 20070525
  Receipt Date: 20070515
  Transmission Date: 20071010
  Serious: Yes (Other)
  Sender: FDA-Public Use
  Company Number: AU-ELI_LILLY_AND_COMPANY-AU200705004964

PATIENT
  Sex: Male

DRUGS (1)
  1. STRATTERA [Suspect]
     Indication: SCHIZOPHRENIA

REACTIONS (8)
  - ABNORMAL BEHAVIOUR [None]
  - AGGRESSION [None]
  - ANXIETY [None]
  - FACIAL SPASM [None]
  - HOSTILITY [None]
  - PARAMNESIA [None]
  - REGRESSIVE BEHAVIOUR [None]
  - SUICIDAL IDEATION [None]
